FAERS Safety Report 4292797-9 (Version None)
Quarter: 2004Q1

REPORT INFORMATION
  Report Type: 
  Country: None (occurrence: None)
  Receive Date: 20040210
  Receipt Date: 20040126
  Transmission Date: 20041129
  Serious: Yes (Other)
  Sender: FDA-Public Use
  Company Number: 2003-06495

PATIENT
  Sex: Male

DRUGS (4)
  1. VIREAD [Suspect]
     Dosage: 300 MG QD PO
     Route: 048
     Dates: start: 20031121
  2. KALETRA [Suspect]
     Dosage: 6 PO
     Route: 048
     Dates: start: 20031121, end: 20031208
  3. LAMIVUDINE [Suspect]
     Dates: start: 20031121
  4. COTRIM [Concomitant]

REACTIONS (1)
  - ERYTHEMA MULTIFORME [None]
